FAERS Safety Report 21514884 (Version 2)
Quarter: 2022Q4

REPORT INFORMATION
  Report Type: Spontaneous
  Country: US (occurrence: US)
  Receive Date: 20221027
  Receipt Date: 20221130
  Transmission Date: 20230112
  Serious: Yes (Hospitalization, Other)
  Sender: FDA-Public Use
  Company Number: US-RIGEL Pharmaceuticals, INC-2022FOS000845

PATIENT
  Sex: Female

DRUGS (1)
  1. TAVALISSE [Suspect]
     Active Substance: FOSTAMATINIB
     Indication: Immune thrombocytopenia
     Dosage: 150 MG, BID
     Route: 048
     Dates: start: 20200528

REACTIONS (11)
  - Medical procedure [Unknown]
  - Wound closure [Unknown]
  - Candida infection [Unknown]
  - Biopsy skin [Unknown]
  - Haemorrhage [Unknown]
  - Cough [Unknown]
  - Epistaxis [Unknown]
  - Infection [Unknown]
  - Depressed mood [Unknown]
  - Anxiety [Unknown]
  - Pain [Unknown]

NARRATIVE: CASE EVENT DATE: 20220101
